FAERS Safety Report 12154607 (Version 12)
Quarter: 2018Q2

REPORT INFORMATION
  Report Type: Report from Study
  Country: CA (occurrence: CA)
  Receive Date: 20160307
  Receipt Date: 20180508
  Transmission Date: 20180711
  Serious: Yes (Hospitalization, Other)
  Sender: FDA-Public Use
  Company Number: PHHY2012CA069342

PATIENT
  Age: 64 Year
  Sex: Male

DRUGS (3)
  1. AFINITOR [Suspect]
     Active Substance: EVEROLIMUS
     Indication: PANCREATIC NEUROENDOCRINE TUMOUR
     Dosage: 10 MG, QD (ONCE DAILY)
     Route: 048
     Dates: start: 20120526
  2. SANDOSTATIN LAR DEPOT [Suspect]
     Active Substance: OCTREOTIDE ACETATE
     Indication: PANCREATIC NEUROENDOCRINE TUMOUR
     Dosage: 30 MG, QMO (EVERY 4 WEEKS)
     Route: 030
     Dates: start: 20030901
  3. SANDOSTATIN LAR DEPOT [Suspect]
     Active Substance: OCTREOTIDE ACETATE
     Dosage: 30 MG, TIW
     Route: 030
     Dates: start: 20180411

REACTIONS (18)
  - Feeding disorder [Unknown]
  - White blood cell count decreased [Unknown]
  - Abdominal pain [Not Recovered/Not Resolved]
  - Neutrophil count decreased [Recovering/Resolving]
  - Cerebrovascular accident [Unknown]
  - Pain [Unknown]
  - Dehydration [Unknown]
  - Second primary malignancy [Unknown]
  - Rash pruritic [Unknown]
  - Heart rate decreased [Unknown]
  - Inappropriate schedule of drug administration [Unknown]
  - Neoplasm [Unknown]
  - Blood pressure decreased [Unknown]
  - Infection [Unknown]
  - Loss of consciousness [Unknown]
  - Pyrexia [Unknown]
  - Burkitt^s lymphoma [Unknown]
  - Blood pressure increased [Unknown]

NARRATIVE: CASE EVENT DATE: 20150802
